FAERS Safety Report 6503543-X (Version None)
Quarter: 2009Q4

REPORT INFORMATION
  Report Type: 
  Country: None (occurrence: None)
  Receive Date: 20091217
  Receipt Date: 20091214
  Transmission Date: 20100525
  Serious: Yes (Hospitalization, Other)
  Sender: FDA-Public Use
  Company Number: FR-BAYER-200942893GPV

PATIENT
  Age: 85 Year
  Sex: Female

DRUGS (4)
  1. NEXAVAR [Suspect]
     Dosage: UNIT DOSE: 200 MG
     Route: 048
     Dates: start: 20080320, end: 20080402
  2. SUTENT [Suspect]
     Indication: RENAL CANCER
     Route: 048
     Dates: start: 20071231, end: 20080128
  3. SUTENT [Suspect]
     Route: 048
     Dates: start: 20080218, end: 20080317
  4. FEMARA [Concomitant]
     Indication: BREAST CANCER
     Route: 048
     Dates: end: 20070101

REACTIONS (2)
  - COLITIS [None]
  - ERYTHEMA MULTIFORME [None]
